FAERS Safety Report 7497912-1 (Version None)
Quarter: 2011Q2

REPORT INFORMATION
  Report Type: 
  Country: None (occurrence: None)
  Receive Date: 20110524
  Receipt Date: 20110512
  Transmission Date: 20111010
  Serious: Yes (Hospitalization)
  Sender: FDA-Public Use
  Company Number: US-BIOGENIDEC-2011BI017761

PATIENT
  Age: 64 Year
  Sex: Male

DRUGS (1)
  1. TYSABRI [Suspect]
     Indication: MULTIPLE SCLEROSIS
     Route: 042
     Dates: start: 20091001

REACTIONS (5)
  - KIDNEY INFECTION [None]
  - MUSCULAR WEAKNESS [None]
  - NEPHROLITHIASIS [None]
  - SYNCOPE [None]
  - DYSSTASIA [None]
